FAERS Safety Report 7085771-0 (Version None)
Quarter: 2010Q4

REPORT INFORMATION
  Report Type: 
  Country: None (occurrence: None)
  Receive Date: 20101105
  Receipt Date: 20101029
  Transmission Date: 20110411
  Serious: Yes (Death, Hospitalization)
  Sender: FDA-Public Use
  Company Number: JP-ROCHE-641812

PATIENT
  Sex: Male
  Weight: 51 kg

DRUGS (10)
  1. TOCILIZUMAB [Suspect]
     Indication: RHEUMATOID ARTHRITIS
     Route: 041
     Dates: start: 20080828, end: 20080828
  2. ISONIAZID [Concomitant]
     Dosage: FORM: TABLET
     Route: 048
     Dates: start: 20080807
  3. PREDNISOLONE [Concomitant]
     Route: 048
     Dates: start: 20060101
  4. PREDNISOLONE [Concomitant]
     Dosage: DOSEFORM: PERORAL AGENT.
     Route: 048
     Dates: start: 20080925, end: 20081001
  5. PREDNISOLONE [Concomitant]
     Route: 048
     Dates: start: 20081002, end: 20081015
  6. PREDNISOLONE [Concomitant]
     Route: 048
     Dates: start: 20081016
  7. MOBIC [Concomitant]
     Route: 048
     Dates: start: 20080828
  8. TAKEPRON [Concomitant]
     Route: 048
     Dates: start: 20080828
  9. PYDOXAL [Concomitant]
     Route: 048
     Dates: start: 20080807
  10. KLARICID [Concomitant]
     Dosage: FORM: PERORAL AGENT
     Route: 048
     Dates: start: 20080828

REACTIONS (4)
  - CELLULITIS [None]
  - OEDEMA PERIPHERAL [None]
  - SKIN ULCER [None]
  - SPOROTRICHOSIS [None]
